FAERS Safety Report 16923358 (Version 1)
Quarter: 2019Q4

REPORT INFORMATION
  Report Type: Spontaneous
  Country: US (occurrence: US)
  Receive Date: 20191016
  Receipt Date: 20191016
  Transmission Date: 20200122
  Serious: Yes (Other)
  Sender: FDA-Public Use
  Company Number: US-HIKMA PHARMACEUTICALS USA INC.-US-H14001-19-05256

PATIENT
  Age: 22 Year
  Sex: Female

DRUGS (1)
  1. CHLOROPROCAINE [Suspect]
     Active Substance: CHLOROPROCAINE
     Indication: ABORTION INDUCED
     Dosage: TWO 5 ML INCREMENTS;
     Route: 065

REACTIONS (4)
  - Blood pressure decreased [Recovered/Resolved]
  - Maternal exposure during delivery [Recovered/Resolved]
  - Bradycardia [Recovered/Resolved]
  - Dyspnoea [Recovered/Resolved]
